FAERS Safety Report 6765224-7 (Version None)
Quarter: 2010Q2

REPORT INFORMATION
  Report Type: 
  Country: None (occurrence: None)
  Receive Date: 20100610
  Receipt Date: 20100610
  Transmission Date: 20101027
  Serious: Yes (Hospitalization)
  Sender: FDA-Public Use
  Company Number: None

PATIENT
  Sex: Female
  Weight: 66.6 kg

DRUGS (7)
  1. CYCLOPHOSPHAMIDE [Suspect]
     Dosage: 3360 MG
  2. CYTARABINE [Suspect]
     Dosage: 2016 MG
  3. MERCAPTOPURINE [Suspect]
     Dosage: 2800 MG
  4. METHOTREXATE [Suspect]
     Dosage: 45 MG
  5. VINCRISTINE SULFATE [Suspect]
     Dosage: 6 MG
  6. ARIXTRA [Concomitant]
  7. AVELOX [Concomitant]

REACTIONS (7)
  - ABDOMINAL PAIN [None]
  - ATRIAL FLUTTER [None]
  - CLOSTRIDIUM DIFFICILE COLITIS [None]
  - DEHYDRATION [None]
  - DIARRHOEA HAEMORRHAGIC [None]
  - HYPOTENSION [None]
  - TACHYCARDIA [None]
